FAERS Safety Report 9657323 (Version 3)
Quarter: 2013Q4

REPORT INFORMATION
  Report Type: Spontaneous
  Country: US (occurrence: US)
  Receive Date: 20131030
  Receipt Date: 20131230
  Transmission Date: 20140711
  Serious: Yes (Other)
  Sender: FDA-Public Use
  Company Number: US-GLAXOSMITHKLINE-A1047421A

PATIENT
  Age: 59 Year
  Sex: Male
  Weight: 73.6 kg

DRUGS (12)
  1. VOTRIENT [Suspect]
     Indication: NEOPLASM MALIGNANT
     Dosage: 800MG PER DAY
     Route: 065
  2. LOVENOX [Suspect]
     Indication: DEEP VEIN THROMBOSIS
     Route: 065
     Dates: start: 20131011
  3. COUMADIN [Suspect]
     Indication: DEEP VEIN THROMBOSIS
     Route: 065
     Dates: start: 20131011
  4. TRABECTEDIN [Concomitant]
  5. MULTIVITAMIN [Concomitant]
  6. CALCIUM WITH VITAMIN D [Concomitant]
  7. ACETAMINOPHEN [Concomitant]
  8. FISH OIL [Concomitant]
  9. RANITIDINE [Concomitant]
  10. SENNA [Concomitant]
  11. METAMUCIL [Concomitant]
  12. PROCHLORPERAZINE [Concomitant]

REACTIONS (8)
  - Haematemesis [Recovered/Resolved]
  - Retinal tear [Recovered/Resolved]
  - Thrombosis [Recovered/Resolved]
  - Fatigue [Recovered/Resolved]
  - Vomiting [Recovered/Resolved]
  - Abdominal pain [Recovered/Resolved]
  - Haematuria [Recovered/Resolved]
  - Muscle spasms [Recovered/Resolved]
